FAERS Safety Report 8859051 (Version 1)
Quarter: 2012Q4

REPORT INFORMATION
  Report Type: 
  Country: US (occurrence: US)
  Receive Date: 20121024
  Receipt Date: 20121024
  Transmission Date: 20130627
  Serious: Yes (Hospitalization, Other)
  Sender: FDA-Public Use
  Company Number: US-EISAI INC-E3810-06013-SPO-US

PATIENT
  Age: 82 None
  Sex: Female
  Weight: 54 kg

DRUGS (2)
  1. ACIPHEX (RABEPRAZOLE) [Suspect]
     Indication: GERD
     Route: 048
  2. ACIPHEX (RABEPRAZOLE) [Suspect]
     Route: 048

REACTIONS (11)
  - Nephropathy [Not Recovered/Not Resolved]
  - Optic nerve infarction [Recovered/Resolved]
  - Blindness unilateral [Not Recovered/Not Resolved]
  - Blindness [Not Recovered/Not Resolved]
  - Loss of control of legs [Recovered/Resolved]
  - Renal failure chronic [Not Recovered/Not Resolved]
  - Medication error [Not Recovered/Not Resolved]
  - Incorrect dose administered [Not Recovered/Not Resolved]
  - Weight decreased [Not Recovered/Not Resolved]
  - Memory impairment [Not Recovered/Not Resolved]
  - Malaise [Not Recovered/Not Resolved]
